FAERS Safety Report 11694550 (Version 1)
Quarter: 2015Q4

REPORT INFORMATION
  Report Type: Spontaneous
  Country: US (occurrence: US)
  Receive Date: 20151103
  Receipt Date: 20151103
  Transmission Date: 20160304
  Serious: No
  Sender: FDA-Public Use
  Company Number: US-AKRIMAX-TIR-04811

PATIENT
  Age: 2 Year
  Sex: Male

DRUGS (1)
  1. TIROSINT [Suspect]
     Active Substance: LEVOTHYROXINE SODIUM
     Indication: ACCIDENTAL EXPOSURE TO PRODUCT BY CHILD
     Dosage: THREE 100MCG CAPSULES
     Route: 048

REACTIONS (3)
  - Accidental exposure to product by child [None]
  - Accidental exposure to product [Unknown]
  - No adverse event [Unknown]

NARRATIVE: CASE EVENT DATE: 20150727
